FAERS Safety Report 6245148-4 (Version None)
Quarter: 2009Q2

REPORT INFORMATION
  Report Type: 
  Country: None (occurrence: None)
  Receive Date: 20090619
  Receipt Date: 20090512
  Transmission Date: 20091009
  Serious: No
  Sender: FDA-Public Use
  Company Number: ALL1-2009-01352

PATIENT
  Age: 6 Year
  Sex: Male
  Weight: 24.5 kg

DRUGS (5)
  1. VYVANSE [Suspect]
     Indication: ATTENTION DEFICIT/HYPERACTIVITY DISORDER
     Dosage: 40 MG, 1X/DAY QD, ORAL; 50 MG, 1X/DAY QD, ORAL
     Route: 048
     Dates: start: 20070101, end: 20070101
  2. VYVANSE [Suspect]
     Indication: ATTENTION DEFICIT/HYPERACTIVITY DISORDER
     Dosage: 40 MG, 1X/DAY QD, ORAL; 50 MG, 1X/DAY QD, ORAL
     Route: 048
     Dates: start: 20090428
  3. RITALIN [Suspect]
     Indication: ATTENTION DEFICIT/HYPERACTIVITY DISORDER
     Dosage: MG, 1X/DAY, QD, ORAL
     Route: 048
     Dates: start: 20070101, end: 20090427
  4. ZOLOFT /01011401/ (SERTRALINE) TABLETS [Concomitant]
  5. ABILIFY (ARIPIRAZOLE) [Concomitant]

REACTIONS (5)
  - AGGRESSION [None]
  - ANGER [None]
  - CONDITION AGGRAVATED [None]
  - NEGATIVISM [None]
  - PSYCHOMOTOR HYPERACTIVITY [None]
